FAERS Safety Report 12250233 (Version 1)
Quarter: 2016Q2

REPORT INFORMATION
  Report Type: Report from Study
  Country: NL (occurrence: NL)
  Receive Date: 20160408
  Receipt Date: 20160408
  Transmission Date: 20160815
  Serious: Yes (Hospitalization, Other)
  Sender: FDA-Public Use
  Company Number: NL-TEVA-649122ISR

PATIENT
  Age: 54 Year
  Sex: Female

DRUGS (3)
  1. DOCETAXEL. [Suspect]
     Active Substance: DOCETAXEL
     Indication: INTRADUCTAL PROLIFERATIVE BREAST LESION
     Dosage: 75 MG/M2 DAILY; ON DAY 1 OF EACH CYCLE, EVERY 3 WEEKS
     Route: 050
  2. CAPECITABINE. [Suspect]
     Active Substance: CAPECITABINE
     Dosage: DOSE WAS REDUCED BY 75% IN CYCLE 3
     Route: 065
  3. CAPECITABINE. [Suspect]
     Active Substance: CAPECITABINE
     Indication: INTRADUCTAL PROLIFERATIVE BREAST LESION
     Dosage: 1650 MG/M2 DAILY; 825 MG/M2 TWICE DAILY ON DAYS 1-14 OF EACH CYCLE, EVERY 3 WEEKS
     Route: 065

REACTIONS (6)
  - Toxicity to various agents [Unknown]
  - Palmar-plantar erythrodysaesthesia syndrome [Recovering/Resolving]
  - Diarrhoea [Unknown]
  - Mastitis [Unknown]
  - Febrile neutropenia [Unknown]
  - Leukopenia [Unknown]
